FAERS Safety Report 17635514 (Version 1)
Quarter: 2020Q2

REPORT INFORMATION
  Report Type: Spontaneous
  Country: US (occurrence: US)
  Receive Date: 20200407
  Receipt Date: 20200407
  Transmission Date: 20200713
  Serious: No
  Sender: FDA-Public Use
  Company Number: US-TEVA-2020-US-1218042

PATIENT

DRUGS (1)
  1. BISOPROLOL HCTZ [Suspect]
     Active Substance: BISOPROLOL FUMARATE\HYDROCHLOROTHIAZIDE
     Dosage: STRENGTH:  2.5-6.25

REACTIONS (4)
  - Vomiting [Unknown]
  - Vision blurred [Unknown]
  - Gait disturbance [Unknown]
  - Dizziness [Unknown]
